FAERS Safety Report 5530792-X (Version None)
Quarter: 2007Q4

REPORT INFORMATION
  Report Type: 
  Country: None (occurrence: None)
  Receive Date: 20071130
  Receipt Date: 20071127
  Transmission Date: 20080405
  Serious: Yes (Life-Threatening)
  Sender: FDA-Public Use
  Company Number: US-MERCK-0707USA01033

PATIENT
  Age: 57 Year
  Sex: Male
  Weight: 119 kg

DRUGS (6)
  1. JANUVIA [Suspect]
     Indication: TYPE 2 DIABETES MELLITUS
     Route: 048
     Dates: start: 20070101
  2. SOTALOL HYDROCHLORIDE [Concomitant]
     Route: 048
  3. METFORMIN [Concomitant]
     Route: 048
  4. LIPITOR [Concomitant]
     Route: 048
  5. AMARYL [Concomitant]
     Route: 048
  6. BENICAR [Concomitant]
     Route: 048

REACTIONS (1)
  - ATRIAL FIBRILLATION [None]
